FAERS Safety Report 19535500 (Version 3)
Quarter: 2021Q3

REPORT INFORMATION
  Report Type: Spontaneous
  Country: GB (occurrence: GB)
  Receive Date: 20210714
  Receipt Date: 20210723
  Transmission Date: 20211014
  Serious: Yes (Other)
  Sender: FDA-Public Use
  Company Number: GB-JNJFOC-20210718592

PATIENT
  Age: 87 Year
  Sex: Female

DRUGS (3)
  1. SIMPONI [Suspect]
     Active Substance: GOLIMUMAB
     Indication: RHEUMATOID ARTHRITIS
     Dosage: STRENGTH: 50 MG/ML
     Route: 058
  2. METHOTREXATE. [Suspect]
     Active Substance: METHOTREXATE
     Indication: PRODUCT USED FOR UNKNOWN INDICATION
     Route: 065
  3. WARFARIN [Suspect]
     Active Substance: WARFARIN
     Indication: PRODUCT USED FOR UNKNOWN INDICATION
     Route: 065

REACTIONS (7)
  - Chest pain [Not Recovered/Not Resolved]
  - Malaise [Unknown]
  - Mobility decreased [Unknown]
  - Night sweats [Unknown]
  - Swelling [Not Recovered/Not Resolved]
  - Mouth swelling [Unknown]
  - Pain [Unknown]

NARRATIVE: CASE EVENT DATE: 2021
